FAERS Safety Report 12912173 (Version 1)
Quarter: 2016Q4

REPORT INFORMATION
  Report Type: Spontaneous
  Country: US (occurrence: US)
  Receive Date: 20161104
  Receipt Date: 20161104
  Transmission Date: 20170207
  Serious: No
  Sender: FDA-Public Use
  Company Number: US-CHARTWELL LIFE SCIENCE LLC-2015CHA00010

PATIENT
  Age: 52 Year
  Sex: Male
  Weight: 113.38 kg

DRUGS (8)
  1. DOXYCYCLINE HYCLATE. [Suspect]
     Active Substance: DOXYCYCLINE HYCLATE
     Indication: NASAL POLYPS
  2. PREDNISONE. [Concomitant]
     Active Substance: PREDNISONE
     Dosage: 20 MG, UNK
     Dates: start: 20151031
  3. ZYRTEC [Suspect]
     Active Substance: CETIRIZINE HYDROCHLORIDE
     Dosage: 10 MG, 1X/DAY
     Dates: start: 20151029
  4. ADVIL [Suspect]
     Active Substance: IBUPROFEN
     Indication: SINUS HEADACHE
     Dosage: 1000 MG, 1X/DAY
     Dates: start: 20151024
  5. DOXYCYCLINE HYCLATE. [Suspect]
     Active Substance: DOXYCYCLINE HYCLATE
     Indication: INFECTION PROPHYLAXIS
     Dosage: 100 MG, 2X/DAY
     Route: 048
     Dates: start: 20151031
  6. TUMERIC ROOT TEA [Concomitant]
  7. DOXYCYCLINE HYCLATE. [Suspect]
     Active Substance: DOXYCYCLINE HYCLATE
     Indication: HYPERSENSITIVITY
  8. FLONASE [Concomitant]
     Active Substance: FLUTICASONE PROPIONATE
     Dosage: UNK
     Dates: start: 20151031

REACTIONS (8)
  - Palpitations [Recovered/Resolved]
  - Chest pain [Recovered/Resolved]
  - Pulse pressure increased [Recovered/Resolved]
  - Eye infection [Not Recovered/Not Resolved]
  - Drug interaction [Unknown]
  - Urine output decreased [Recovered/Resolved]
  - Drug ineffective [Not Recovered/Not Resolved]
  - Dehydration [Recovered/Resolved]

NARRATIVE: CASE EVENT DATE: 20151101
